FAERS Safety Report 17737426 (Version 1)
Quarter: 2020Q2

REPORT INFORMATION
  Report Type: Spontaneous
  Country: DE (occurrence: DE)
  Receive Date: 20200504
  Receipt Date: 20200504
  Transmission Date: 20200714
  Serious: Yes (Hospitalization)
  Sender: FDA-Public Use
  Company Number: DE-AUROBINDO-AUR-APL-2020-021446

PATIENT
  Age: 39 Year
  Sex: Female

DRUGS (2)
  1. METHYLPHENIDAT [Suspect]
     Active Substance: METHYLPHENIDATE
     Indication: PRODUCT USED FOR UNKNOWN INDICATION
     Dosage: THE HIGHEST STRENGTH
     Route: 065
     Dates: start: 2006
  2. ZOLPIDEM [Suspect]
     Active Substance: ZOLPIDEM TARTRATE
     Indication: SLEEP DISORDER
     Dosage: UNK INTAKE FOR 20 YEARS
     Route: 065

REACTIONS (3)
  - Ocular discomfort [Unknown]
  - Swelling of eyelid [Unknown]
  - Swelling face [Unknown]
